FAERS Safety Report 16586852 (Version 1)
Quarter: 2019Q3

REPORT INFORMATION
  Report Type: Spontaneous
  Country: US (occurrence: US)
  Receive Date: 20190717
  Receipt Date: 20190717
  Transmission Date: 20191004
  Serious: Yes (Other)
  Sender: FDA-Public Use
  Company Number: US-TEVA-640378USA

PATIENT
  Age: 73 Year
  Sex: Male

DRUGS (7)
  1. METHOTREXATE. [Suspect]
     Active Substance: METHOTREXATE
     Indication: BLASTIC PLASMACYTOID DENDRITIC CELL NEOPLASIA
     Dosage: 7 CYCLES
     Route: 037
  2. PREDNISONE. [Concomitant]
     Active Substance: PREDNISONE
     Route: 065
  3. CYTARABINE HYDROCHLORIDE 100MG/5ML SDV + 500MG/10ML SDV [Suspect]
     Active Substance: CYTARABINE HYDROCHLORIDE
     Indication: BLASTIC PLASMACYTOID DENDRITIC CELL NEOPLASIA
     Dosage: FIVE DOSES
     Route: 037
  4. DOXORUBICIN [Concomitant]
     Active Substance: DOXORUBICIN
     Route: 065
  5. CYCLOPHOSPHAMIDE. [Concomitant]
     Active Substance: CYCLOPHOSPHAMIDE
     Route: 065
  6. ETOPOSIDE. [Concomitant]
     Active Substance: ETOPOSIDE
     Route: 065
  7. VINCRISTINE [Concomitant]
     Active Substance: VINCRISTINE
     Route: 065

REACTIONS (1)
  - Bone marrow toxicity [Not Recovered/Not Resolved]
